FAERS Safety Report 24594415 (Version 1)
Quarter: 2024Q4

REPORT INFORMATION
  Report Type: Report from Study
  Country: US (occurrence: US)
  Receive Date: 20241108
  Receipt Date: 20241108
  Transmission Date: 20250115
  Serious: Yes (Death, Hospitalization, Other)
  Sender: EXELIXIS
  Company Number: US-EXELIXIS-EXL-2024-000693

PATIENT
  Age: 18 Year
  Sex: Male
  Weight: 50.9 kg

DRUGS (37)
  1. CABOMETYX [Suspect]
     Active Substance: CABOZANTINIB S-MALATE
     Indication: Osteosarcoma metastatic
     Dosage: UNK
     Dates: start: 20221028, end: 20230522
  2. CABOMETYX [Suspect]
     Active Substance: CABOZANTINIB S-MALATE
     Dosage: 60 MG, QD
     Route: 048
     Dates: start: 20240808, end: 20240911
  3. GEMCITABINE [Suspect]
     Active Substance: GEMCITABINE
     Indication: Osteosarcoma metastatic
     Dosage: UNK
     Dates: start: 20230727
  4. DOCETAXEL [Suspect]
     Active Substance: DOCETAXEL
     Indication: Osteosarcoma metastatic
     Dosage: UNK
     Dates: start: 20230727
  5. IFOSFAMIDE [Suspect]
     Active Substance: IFOSFAMIDE
     Indication: Osteosarcoma metastatic
     Dosage: 14 G/M2
  6. ETOPOSIDE [Suspect]
     Active Substance: ETOPOSIDE
     Indication: Osteosarcoma metastatic
     Dosage: UNK
  7. ACETAMINOPHEN [Concomitant]
     Active Substance: ACETAMINOPHEN
  8. ALBUTEROL SULFATE [Concomitant]
     Active Substance: ALBUTEROL SULFATE
  9. ATROPINE [Concomitant]
     Active Substance: ATROPINE
     Indication: Secretion discharge
  10. DEXAMETHASONE [Concomitant]
     Active Substance: DEXAMETHASONE
  11. FAMOTIDINE [Concomitant]
     Active Substance: FAMOTIDINE
  12. GABAPENTIN [Concomitant]
     Active Substance: GABAPENTIN
  13. GLYCERIN [Concomitant]
     Active Substance: GLYCERIN
  14. GLYCOPYRROLATE [Concomitant]
     Active Substance: GLYCOPYRROLATE
  15. HALOPERIDOL LACTATE [Concomitant]
     Active Substance: HALOPERIDOL LACTATE
     Indication: Nausea
  16. HALOPERIDOL LACTATE [Concomitant]
     Active Substance: HALOPERIDOL LACTATE
     Indication: Agitation
  17. HALOPERIDOL LACTATE [Concomitant]
     Active Substance: HALOPERIDOL LACTATE
     Indication: Delirium
  18. LEVETIRACETAM [Concomitant]
     Active Substance: LEVETIRACETAM
  19. LIDOCAINE AND PRILOCAINE [Concomitant]
     Active Substance: LIDOCAINE\PRILOCAINE
  20. LORAZEPAM [Concomitant]
     Active Substance: LORAZEPAM
  21. MORPHINE [Concomitant]
     Active Substance: MORPHINE
  22. NYSTATIN [Concomitant]
     Active Substance: NYSTATIN
  23. ONDANSETRON HYDROCHLORIDE [Concomitant]
     Active Substance: ONDANSETRON HYDROCHLORIDE
  24. PROMETHAZINE [Concomitant]
     Active Substance: PROMETHAZINE HYDROCHLORIDE
  25. PROPRANOLOL [Concomitant]
     Active Substance: PROPRANOLOL HYDROCHLORIDE
  26. RITALIN [Concomitant]
     Active Substance: METHYLPHENIDATE HYDROCHLORIDE
     Indication: Fatigue
  27. SCOPOLAMINE [Concomitant]
     Active Substance: SCOPOLAMINE
  28. SERTRALINE [Concomitant]
     Active Substance: SERTRALINE HYDROCHLORIDE
  29. SODIUM CHLORIDE [Concomitant]
     Active Substance: SODIUM CHLORIDE
  30. SULFAMETHOXAZOLE AND TRIMETHOPRIM [Concomitant]
     Active Substance: SULFAMETHOXAZOLE\TRIMETHOPRIM
  31. VALTOCO [Concomitant]
     Active Substance: DIAZEPAM
     Indication: Seizure
  32. KEPPRA [Concomitant]
     Active Substance: LEVETIRACETAM
  33. BACTRIM [Concomitant]
     Active Substance: SULFAMETHOXAZOLE\TRIMETHOPRIM
  34. SCOPOLAMINE [Concomitant]
     Active Substance: SCOPOLAMINE
  35. ZOFRAN [Concomitant]
     Active Substance: ONDANSETRON HYDROCHLORIDE
  36. ATIVAN [Concomitant]
     Active Substance: LORAZEPAM
  37. TYLENOL [Concomitant]
     Active Substance: ACETAMINOPHEN

REACTIONS (18)
  - Pneumothorax [Recovered/Resolved]
  - Acute respiratory failure [Fatal]
  - Haemophilus sepsis [Fatal]
  - Malignant neoplasm progression [Fatal]
  - Metastases to central nervous system [Fatal]
  - Diarrhoea [Recovering/Resolving]
  - Pruritus [Unknown]
  - Lethargy [Unknown]
  - Weight decreased [Unknown]
  - Drug effect less than expected [Unknown]
  - Feeling abnormal [Unknown]
  - Astigmatism [Unknown]
  - Urine output decreased [Unknown]
  - Respiratory acidosis [Unknown]
  - Pleural effusion [Unknown]
  - Anaemia [Unknown]
  - Arthralgia [Unknown]
  - Off label use [Unknown]

NARRATIVE: CASE EVENT DATE: 20240903
